FAERS Safety Report 17719216 (Version 2)
Quarter: 2020Q2

REPORT INFORMATION
  Report Type: Spontaneous
  Country: DE (occurrence: DE)
  Receive Date: 20200428
  Receipt Date: 20200504
  Transmission Date: 20200714
  Serious: Yes (Other)
  Sender: FDA-Public Use
  Company Number: NVSC2020DE114003

PATIENT
  Sex: Female

DRUGS (4)
  1. PROGESTERONE. [Suspect]
     Active Substance: PROGESTERONE
     Indication: PRODUCT USED FOR UNKNOWN INDICATION
     Dosage: 100 MG, CYCLIC (CYCLICALY ADMINISTRATION OF UNKNOWN DAYS (1 CYCLICAL ))
     Route: 048
  2. BISOPROLOL [Concomitant]
     Active Substance: BISOPROLOL
     Indication: BLOOD PRESSURE INCREASED
     Dosage: 1 DF, QD
     Route: 065
  3. BISOPROLOL [Concomitant]
     Active Substance: BISOPROLOL
     Dosage: 2.5 MG, QD (MANY YEARS AGO, 2.5 MILLIGRAM)
     Route: 065
  4. ESTRADIOL. [Suspect]
     Active Substance: ESTRADIOL
     Indication: PRODUCT USED FOR UNKNOWN INDICATION
     Dosage: (LITTLE BIT MORE THAN 1 PUFF DAILY FOR SEVERAL YEARS)
     Route: 065

REACTIONS (4)
  - Incorrect route of product administration [Unknown]
  - Panic attack [Recovered/Resolved]
  - Incorrect dosage administered [Unknown]
  - Atrial fibrillation [Recovered/Resolved]

NARRATIVE: CASE EVENT DATE: 201903
